FAERS Safety Report 13391917 (Version 3)
Quarter: 2017Q2

REPORT INFORMATION
  Report Type: Spontaneous
  Country: US (occurrence: US)
  Receive Date: 20170331
  Receipt Date: 20170531
  Transmission Date: 20170830
  Serious: No
  Sender: FDA-Public Use
  Company Number: US-BIOMARINAP-US-2017-113396

PATIENT
  Sex: Male
  Weight: 11.3 kg

DRUGS (1)
  1. KUVAN [Suspect]
     Active Substance: SAPROPTERIN DIHYDROCHLORIDE
     Indication: PHENYLKETONURIA
     Dosage: 200 MG, QD
     Route: 065
     Dates: start: 20170217

REACTIONS (3)
  - Amino acid level abnormal [Unknown]
  - Viral upper respiratory tract infection [Unknown]
  - Therapy non-responder [Unknown]
